FAERS Safety Report 4307902-5 (Version None)
Quarter: 2004Q1

REPORT INFORMATION
  Report Type: 
  Country: None (occurrence: None)
  Receive Date: 20040225
  Receipt Date: 20030225
  Transmission Date: 20041129
  Serious: Yes (Disabling)
  Sender: FDA-Public Use
  Company Number: WAES 0212USA00856

PATIENT
  Age: 73 Year
  Sex: Female
  Weight: 68.0396 kg

DRUGS (8)
  1. ZOCOR [Suspect]
     Indication: BLOOD CHOLESTEROL INCREASED
     Dosage: 20 MG/DAILY/PO
     Route: 048
     Dates: start: 20020801, end: 20021118
  2. ZOCOR [Suspect]
     Indication: CORONARY ARTERY DISEASE
     Dosage: 20 MG/DAILY/PO
     Route: 048
     Dates: start: 20020801, end: 20021118
  3. ADVAIR DISKUS 100/50 [Concomitant]
  4. PRINIVIL [Concomitant]
  5. TOPROL-XL [Concomitant]
  6. ASPIRIN [Concomitant]
  7. DIGOXIN [Concomitant]
  8. SODIUM FOLATE [Concomitant]

REACTIONS (2)
  - ASTHENIA [None]
  - MYALGIA [None]
